FAERS Safety Report 5456807-5 (Version None)
Quarter: 2007Q3

REPORT INFORMATION
  Report Type: 
  Country: None (occurrence: None)
  Receive Date: 20070918
  Receipt Date: 20070531
  Transmission Date: 20080115
  Serious: Yes (Other)
  Sender: FDA-Public Use
  Company Number: US-ASTRAZENECA-2006UW26205

PATIENT
  Age: 57 Year
  Sex: Female
  Weight: 90.9 kg

DRUGS (4)
  1. SEROQUEL [Suspect]
     Indication: DEPRESSION
     Dosage: 100 MG - 300 MG
     Route: 048
     Dates: start: 19970101, end: 20030101
  2. SEROQUEL [Suspect]
     Indication: INSOMNIA
     Dosage: 100 MG - 300 MG
     Route: 048
     Dates: start: 19970101, end: 20030101
  3. ZYPREXA [Concomitant]
     Dates: start: 20040101
  4. FASTIN [Concomitant]
     Dates: start: 20070101

REACTIONS (5)
  - DIABETES MELLITUS [None]
  - DRUG INEFFECTIVE [None]
  - PAIN [None]
  - PANCREATITIS [None]
  - WEIGHT INCREASED [None]
